FAERS Safety Report 20233119 (Version 1)
Quarter: 2021Q4

REPORT INFORMATION
  Report Type: Spontaneous
  Country: TH (occurrence: TH)
  Receive Date: 20211227
  Receipt Date: 20211227
  Transmission Date: 20220304
  Serious: Yes (Other)
  Sender: FDA-Public Use
  Company Number: TH-NOVARTISPH-NVSC2021TH290090

PATIENT
  Age: 62 Year
  Sex: Female

DRUGS (6)
  1. RIBOCICLIB [Suspect]
     Active Substance: RIBOCICLIB
     Indication: Product used for unknown indication
     Dosage: (200) 3 TAB/DAY (3 WEEK ON 1 WEEK OFF)
     Route: 065
     Dates: start: 20210125
  2. RIBOCICLIB [Suspect]
     Active Substance: RIBOCICLIB
     Dosage: (200) 2 TAB/DAY (3 WEEK ON 1 WEEK)
     Route: 065
     Dates: start: 20210216
  3. RIBOCICLIB [Suspect]
     Active Substance: RIBOCICLIB
     Dosage: (200) 2 TAB/DAY (3 WEEK ON 1 WEEK OFF)
     Route: 065
     Dates: start: 20211207
  4. LETROZOLE [Suspect]
     Active Substance: LETROZOLE
     Indication: Product used for unknown indication
     Dosage: UNK
     Route: 065
     Dates: start: 20210125
  5. LETROZOLE [Suspect]
     Active Substance: LETROZOLE
     Dosage: UNK
     Route: 065
     Dates: start: 20210216
  6. LETROZOLE [Suspect]
     Active Substance: LETROZOLE
     Dosage: UNK
     Route: 065
     Dates: start: 20211207

REACTIONS (2)
  - Neutropenia [Unknown]
  - Superior vena cava occlusion [Unknown]

NARRATIVE: CASE EVENT DATE: 20210209
